FAERS Safety Report 25734511 (Version 1)
Quarter: 2025Q3

REPORT INFORMATION
  Report Type: Spontaneous
  Country: MA (occurrence: MA)
  Receive Date: 20250828
  Receipt Date: 20250828
  Transmission Date: 20251021
  Serious: Yes (Other)
  Sender: RANBAXY
  Company Number: MA-SUN PHARMACEUTICAL INDUSTRIES LTD-2025RR-523653

PATIENT
  Age: 42 Year
  Sex: Female

DRUGS (1)
  1. LATANOPROST [Suspect]
     Active Substance: LATANOPROST
     Indication: Open angle glaucoma
     Dosage: 0.005 PERCENT, DAILY, 0.005% ONCE DAILY
     Route: 065

REACTIONS (3)
  - Choroidal detachment [Unknown]
  - Hyphaema [Unknown]
  - Hypotony of eye [Unknown]
